FAERS Safety Report 10075899 (Version 1)
Quarter: 2014Q2

REPORT INFORMATION
  Report Type: Spontaneous
  Country: FR (occurrence: FR)
  Receive Date: 20140414
  Receipt Date: 20140414
  Transmission Date: 20141212
  Serious: Yes (Other)
  Sender: FDA-Public Use
  Company Number: FR-SA-2014SA043676

PATIENT
  Age: 76 Year
  Sex: Female

DRUGS (16)
  1. ALLOPURINOL [Suspect]
     Indication: GOUT
     Route: 048
     Dates: start: 20140123, end: 20140313
  2. IRBESARTAN [Suspect]
     Indication: HYPERTENSION
     Route: 048
     Dates: start: 20140306, end: 20140313
  3. ATORVASTATIN [Suspect]
     Indication: DYSLIPIDAEMIA
     Route: 048
     Dates: start: 20140227, end: 20140313
  4. VENLAFAXINE HYDROCHLORIDE [Suspect]
     Indication: DEPRESSION
     Route: 048
     Dates: end: 20140313
  5. AMIODARONE HYDROCHLORIDE [Suspect]
     Indication: ATRIAL FIBRILLATION
     Dosage: 200 MG DAILY FIVE DAYS PER WEEK
     Route: 048
     Dates: end: 20140313
  6. COLCHICINE [Suspect]
     Indication: GOUT
     Route: 048
     Dates: start: 20140123, end: 20140313
  7. COUMADINE [Suspect]
     Indication: ATRIAL FIBRILLATION
     Route: 048
     Dates: start: 20140305, end: 20140313
  8. ZOLPIDEM [Concomitant]
     Route: 065
  9. ATARAX [Concomitant]
     Route: 065
  10. SERESTA [Concomitant]
     Route: 065
  11. LYRICA [Concomitant]
     Route: 065
  12. PARACETAMOL [Concomitant]
     Route: 065
  13. VALSARTAN [Concomitant]
     Route: 065
  14. LOXEN [Concomitant]
     Route: 065
  15. ESIDREX [Concomitant]
     Route: 065
  16. PREVISCAN [Concomitant]
     Route: 065

REACTIONS (1)
  - Hepatocellular injury [Recovering/Resolving]
